FAERS Safety Report 15269571 (Version 1)
Quarter: 2018Q3

REPORT INFORMATION
  Report Type: Spontaneous
  Country: KW (occurrence: KW)
  Receive Date: 20180813
  Receipt Date: 20180813
  Transmission Date: 20181010
  Serious: Yes (Death)
  Sender: FDA-Public Use
  Company Number: KW-ASTRAZENECA-2018SF01200

PATIENT
  Age: 35 Year
  Sex: Female

DRUGS (1)
  1. LYNPARZA [Suspect]
     Active Substance: OLAPARIB
     Indication: OVARIAN CANCER
     Route: 048
     Dates: start: 20180621, end: 20180721

REACTIONS (1)
  - Death [Fatal]

NARRATIVE: CASE EVENT DATE: 20180729
